FAERS Safety Report 23435837 (Version 2)
Quarter: 2024Q2

REPORT INFORMATION
  Report Type: Report from Study
  Country: ES (occurrence: ES)
  Receive Date: 20240124
  Receipt Date: 20240510
  Transmission Date: 20240716
  Serious: Yes (Hospitalization)
  Sender: FDA-Public Use
  Company Number: None

PATIENT
  Age: 49 Year
  Sex: Female

DRUGS (1)
  1. SIMPONI [Suspect]
     Active Substance: GOLIMUMAB
     Indication: Ankylosing spondylitis
     Dosage: 50 MG /4 SEMANAS
     Route: 058
     Dates: start: 20190410

REACTIONS (1)
  - Cervix disorder [Recovered/Resolved]

NARRATIVE: CASE EVENT DATE: 20231023
